FAERS Safety Report 25974877 (Version 2)
Quarter: 2025Q4

REPORT INFORMATION
  Report Type: Report from Study
  Country: US (occurrence: US)
  Receive Date: 20251029
  Receipt Date: 20251120
  Transmission Date: 20260117
  Serious: Yes (Hospitalization)
  Sender: ABBVIE
  Company Number: US-ABBVIE-6520924

PATIENT
  Age: 59 Year
  Sex: Female

DRUGS (2)
  1. SKYRIZI [Suspect]
     Active Substance: RISANKIZUMAB-RZAA
     Indication: Psoriasis
     Dosage: TIME INTERVAL: TOTAL: WEEK 0, STRENGTH: 150MG/ML
     Route: 058
     Dates: start: 20250822, end: 20250822
  2. SKYRIZI [Suspect]
     Active Substance: RISANKIZUMAB-RZAA
     Dosage: WEEK 4, STRENGTH: 150MG/ML, THEN EVERY 12 WEEKS
     Route: 058
     Dates: start: 202509

REACTIONS (9)
  - Seizure [Unknown]
  - Memory impairment [Unknown]
  - Back pain [Unknown]
  - Impaired gastric emptying [Unknown]
  - Vomiting [Unknown]
  - Blood potassium decreased [Unknown]
  - Painful respiration [Unknown]
  - Blood magnesium decreased [Unknown]
  - Dehydration [Unknown]

NARRATIVE: CASE EVENT DATE: 20250101
